FAERS Safety Report 9911571 (Version 1)
Quarter: 2014Q1

REPORT INFORMATION
  Report Type: Spontaneous
  Country: US (occurrence: US)
  Receive Date: 20140219
  Receipt Date: 20140219
  Transmission Date: 20141002
  Serious: Yes (Other)
  Sender: FDA-Public Use
  Company Number: PHHY2014US018377

PATIENT
  Sex: 0

DRUGS (3)
  1. GILENYA [Suspect]
     Indication: MULTIPLE SCLEROSIS
     Dosage: MATERNAL DOSE: 0.5 MG, DAILY
     Route: 064
  2. ADVAIR [Concomitant]
     Dosage: MATERNAL DOSE: 500/50, DAILY
     Route: 064
  3. ALBUTEROL [Concomitant]
     Dosage: MATERNAL DOSE: 90MG, AS NEEDED
     Route: 064

REACTIONS (3)
  - Foetal disorder [Unknown]
  - Ultrasound antenatal screen abnormal [Unknown]
  - Foetal exposure during pregnancy [Unknown]
